FAERS Safety Report 13514301 (Version 1)
Quarter: 2017Q2

REPORT INFORMATION
  Report Type: Report from Study
  Country: US (occurrence: US)
  Receive Date: 20170504
  Receipt Date: 20170504
  Transmission Date: 20170830
  Serious: Yes (Death)
  Sender: FDA-Public Use
  Company Number: US-PFIZER INC-2017190027

PATIENT
  Weight: 18.7 kg

DRUGS (3)
  1. METHOTREXATE SODIUM. [Suspect]
     Active Substance: METHOTREXATE SODIUM
     Dosage: 1.5 MG/KG, (3 TREATMENTS)
     Route: 037
  2. METHOTREXATE SODIUM. [Suspect]
     Active Substance: METHOTREXATE SODIUM
     Indication: CENTRAL NERVOUS SYSTEM LEUKAEMIA
     Dosage: 1.77 MG/KG, (4 TREATMENTS)
     Route: 037
  3. METHOTREXATE SODIUM. [Suspect]
     Active Substance: METHOTREXATE SODIUM
     Dosage: 2 MG/KG, (4 TREATMENTS)
     Route: 037

REACTIONS (3)
  - Subarachnoid haemorrhage [Fatal]
  - Thrombocytopenia [Fatal]
  - Subdural haemorrhage [Fatal]
